FAERS Safety Report 5442928-X (Version None)
Quarter: 2007Q3

REPORT INFORMATION
  Report Type: 
  Country: None (occurrence: None)
  Receive Date: 20070830
  Receipt Date: 20070821
  Transmission Date: 20080115
  Serious: Yes (Other)
  Sender: FDA-Public Use
  Company Number: 2007JP003649

PATIENT
  Age: 64 Year
  Sex: Male
  Weight: 68 kg

DRUGS (7)
  1. VESICARE [Suspect]
     Indication: POLLAKIURIA
     Dosage: 5 MG, UID/QD, ORAL; ORAL
     Route: 048
     Dates: start: 20061006, end: 20061212
  2. VESICARE [Suspect]
     Indication: POLLAKIURIA
     Dosage: 5 MG, UID/QD, ORAL; ORAL
     Route: 048
     Dates: start: 20070121, end: 20070128
  3. NIFELAT L [Concomitant]
  4. TANATRIL (IMIDAPRIL HYDROCHLORIDE) [Concomitant]
  5. JUVELA (TOCOPHERYL NICOTINATE) [Concomitant]
  6. HALCION [Concomitant]
  7. ELASTASE (ELASTASE) [Concomitant]

REACTIONS (6)
  - ASTHENIA [None]
  - BLOOD CREATINE PHOSPHOKINASE INCREASED [None]
  - DISCOMFORT [None]
  - PARKINSON'S DISEASE [None]
  - RESPIRATORY DISORDER [None]
  - TREMOR [None]
